FAERS Safety Report 6762623-4 (Version None)
Quarter: 2010Q2

REPORT INFORMATION
  Report Type: 
  Country: None (occurrence: None)
  Receive Date: 20100609
  Receipt Date: 20100601
  Transmission Date: 20101027
  Serious: Yes (Other)
  Sender: FDA-Public Use
  Company Number: JP-MERCK-1006USA00796

PATIENT
  Age: 61 Year
  Sex: Female

DRUGS (10)
  1. PEPCID RPD [Suspect]
     Route: 048
  2. BIOFERMIN [Concomitant]
     Route: 048
  3. LASIX [Concomitant]
     Route: 048
  4. LOXONIN [Concomitant]
     Route: 048
  5. OXYCODONE HYDROCHLORIDE [Concomitant]
     Route: 048
     Dates: start: 20100527
  6. DOGMATYL [Suspect]
     Route: 048
     Dates: start: 20100527, end: 20100601
  7. PREDONINE [Concomitant]
     Route: 048
  8. MAGLAX [Concomitant]
     Route: 048
  9. GLYBURIDE [Concomitant]
     Route: 048
  10. DEPAS [Concomitant]
     Route: 048

REACTIONS (2)
  - RESPIRATORY DEPRESSION [None]
  - SOMNOLENCE [None]
